FAERS Safety Report 9037209 (Version 1)
Quarter: 2013Q1

REPORT INFORMATION
  Report Type: Spontaneous
  Country: US (occurrence: None)
  Receive Date: 20130123
  Receipt Date: 20130123
  Transmission Date: 20140127
  Serious: Yes (Life-Threatening, Hospitalization)
  Sender: FDA-Public Use
  Company Number: None

PATIENT
  Age: 74 Year
  Sex: Female
  Weight: 61.87 kg

DRUGS (2)
  1. OLMESARTAN MEDOXIMIL 40MG DAIICHI SANKYO [Suspect]
     Indication: HYPERTENSION
  2. OLMESARTAN MEDOXIMIL 40MG DAIICHI SANKYO [Suspect]
     Indication: RENAL FAILURE CHRONIC

REACTIONS (5)
  - Coeliac disease [None]
  - Nausea [None]
  - Vomiting [None]
  - Diarrhoea [None]
  - Gastrointestinal disorder [None]
